FAERS Safety Report 4526981-3 (Version None)
Quarter: 2004Q4

REPORT INFORMATION
  Report Type: 
  Country: None (occurrence: None)
  Receive Date: 20041213
  Receipt Date: 20041123
  Transmission Date: 20050328
  Serious: Yes (Life-Threatening, Hospitalization)
  Sender: FDA-Public Use
  Company Number: 2004094057

PATIENT
  Age: 41 Year
  Sex: Female
  Weight: 56 kg

DRUGS (2)
  1. BEXTRA [Suspect]
     Indication: POST PROCEDURAL PAIN
     Dosage: 10 MG (10 MG, 1 IN 1 D), ORAL
     Route: 048
     Dates: start: 20041112, end: 20041113
  2. METRONIDAZOLE [Concomitant]

REACTIONS (1)
  - ANAPHYLACTIC REACTION [None]
